FAERS Safety Report 9303342 (Version 1)
Quarter: 2013Q2

REPORT INFORMATION
  Report Type: Spontaneous
  Country: US (occurrence: US)
  Receive Date: 20130522
  Receipt Date: 20130522
  Transmission Date: 20140414
  Serious: No
  Sender: FDA-Public Use
  Company Number: US-PFIZER INC-2013154407

PATIENT
  Sex: Female
  Weight: 57.14 kg

DRUGS (1)
  1. ADVIL PM [Suspect]
     Indication: SLEEP DISORDER
     Dosage: 200MG, DAILY AT NIGHT

REACTIONS (2)
  - Drug ineffective [Unknown]
  - Nervousness [Unknown]
